FAERS Safety Report 9624791 (Version 1)
Quarter: 2013Q4

REPORT INFORMATION
  Report Type: Report from Study
  Country: BE (occurrence: BE)
  Receive Date: 20131015
  Receipt Date: 20131015
  Transmission Date: 20140711
  Serious: Yes (Hospitalization)
  Sender: FDA-Public Use
  Company Number: BE-ROCHE-1285823

PATIENT
  Age: 55 Year
  Sex: Female

DRUGS (4)
  1. TRASTUZUMAB EMTANSINE [Suspect]
     Indication: BREAST CANCER
     Dosage: DATE OF LAST DOSE PRIOR TO THE EVENT: 03/OCT/2013
     Route: 042
     Dates: start: 20111222
  2. AMLODIPINE [Concomitant]
     Indication: HYPERTENSION
     Route: 065
     Dates: start: 20111020, end: 201202
  3. AMLODIPINE [Concomitant]
     Route: 065
     Dates: start: 20120315
  4. FRAXIPARINE [Concomitant]
     Indication: THROMBOSIS PROPHYLAXIS
     Route: 065
     Dates: start: 20131007

REACTIONS (1)
  - Erysipelas [Recovered/Resolved]
